FAERS Safety Report 8336250-1 (Version None)
Quarter: 2012Q2

REPORT INFORMATION
  Report Type: 
  Country: None (occurrence: None)
  Receive Date: 20120501
  Receipt Date: 20120417
  Transmission Date: 20120825
  Serious: Yes (Other)
  Sender: FDA-Public Use
  Company Number: US-DEXPHARM-20120156

PATIENT
  Age: 18 Year
  Sex: Female

DRUGS (8)
  1. ESOMEPRAZOLE MAGNESIUM [Suspect]
     Dosage: 40 MG ONCE A DAY
  2. CARVEDILOL [Concomitant]
  3. VALGANCICLOVIR [Concomitant]
  4. OMEPRAZOLE [Suspect]
     Dosage: 40 MG ONCE A DAY
  5. PREDNISONE TAB [Concomitant]
  6. TACROLIMUS [Suspect]
     Indication: RENAL TRANSPLANT
     Dosage: 6 MG ONCE A DAY
  7. TACROLIMUS [Suspect]
     Indication: RENAL TRANSPLANT
     Dosage: 4 MG ONCE A DAY
  8. SULFAMETHOXAZOLE AND TRIMETHOPRIM [Concomitant]

REACTIONS (7)
  - IMMUNOSUPPRESSANT DRUG LEVEL INCREASED [None]
  - FATIGUE [None]
  - VOMITING [None]
  - NAUSEA [None]
  - DRUG INTERACTION [None]
  - SINUSITIS [None]
  - BLOOD CREATININE INCREASED [None]
